FAERS Safety Report 5369270-X (Version None)
Quarter: 2007Q2

REPORT INFORMATION
  Report Type: 
  Country: None (occurrence: None)
  Receive Date: 20070621
  Receipt Date: 20070621
  Transmission Date: 20071010
  Serious: No
  Sender: FDA-Public Use
  Company Number: None

PATIENT
  Age: 35 Year
  Sex: Female
  Weight: 78.0187 kg

DRUGS (1)
  1. ALPRAZOLAM [Suspect]
     Indication: PANIC ATTACK

REACTIONS (3)
  - PHARMACEUTICAL PRODUCT COMPLAINT [None]
  - SEDATION [None]
  - SUDDEN ONSET OF SLEEP [None]
